FAERS Safety Report 9280433 (Version 1)
Quarter: 2013Q2

REPORT INFORMATION
  Report Type: Spontaneous
  Country: GB (occurrence: GB)
  Receive Date: 20130509
  Receipt Date: 20130509
  Transmission Date: 20140414
  Serious: Yes (Other)
  Sender: FDA-Public Use
  Company Number: PHHY2013GB044989

PATIENT
  Age: 64 Year
  Sex: Male

DRUGS (3)
  1. MYCOPHENOLATE MOFETIL [Suspect]
     Indication: RENAL TRANSPLANT
     Dosage: 750 MG, BID
  2. MYCOPHENOLATE MOFETIL [Suspect]
     Dosage: 250 MG, BID
  3. CICLOSPORIN [Concomitant]
     Indication: RENAL TRANSPLANT

REACTIONS (4)
  - Crohn^s disease [Recovered/Resolved]
  - Mucous stools [Recovered/Resolved]
  - Back pain [Recovered/Resolved]
  - Frequent bowel movements [Unknown]
